FAERS Safety Report 12355943 (Version 1)
Quarter: 2016Q2

REPORT INFORMATION
  Report Type: Report from Study
  Country: US (occurrence: US)
  Receive Date: 20160511
  Receipt Date: 20160511
  Transmission Date: 20160815
  Serious: Yes (Hospitalization, Other)
  Sender: FDA-Public Use
  Company Number: US-BAYER-2016-067890

PATIENT
  Age: 64 Year
  Sex: Female

DRUGS (1)
  1. STIVARGA [Suspect]
     Active Substance: REGORAFENIB
     Indication: COLORECTAL CANCER METASTATIC
     Dosage: 160 MG, QD
     Route: 048
     Dates: start: 20160406, end: 20160415

REACTIONS (9)
  - Dyspnoea [None]
  - Fatigue [None]
  - Blood pressure increased [Not Recovered/Not Resolved]
  - Dysphonia [None]
  - Blood pressure fluctuation [None]
  - Asthenia [None]
  - Anxiety [None]
  - Anaemia [None]
  - Feeling abnormal [None]

NARRATIVE: CASE EVENT DATE: 201604
